FAERS Safety Report 8682302 (Version 3)
Quarter: 2017Q3

REPORT INFORMATION
  Report Type: Spontaneous
  Country: US (occurrence: US)
  Receive Date: 20120725
  Receipt Date: 20170823
  Transmission Date: 20171128
  Serious: Yes (Other)
  Sender: FDA-Public Use
  Company Number: US-FRI-1000037168

PATIENT
  Age: 53 Year
  Sex: Female
  Weight: 110.2 kg

DRUGS (7)
  1. ARMOUR THYROID [Suspect]
     Active Substance: THYROID, PORCINE
     Dosage: 60 MG, TID
     Route: 048
     Dates: start: 2011, end: 201207
  2. ARMOUR THYROID [Suspect]
     Active Substance: THYROID, PORCINE
     Dosage: 60 MG, TID
     Route: 048
     Dates: start: 2012
  3. DALMANE [Concomitant]
     Active Substance: FLURAZEPAM HYDROCHLORIDE
     Indication: INSOMNIA
     Dosage: UNK
     Route: 065
  4. ARMOUR THYROID [Suspect]
     Active Substance: THYROID, PORCINE
     Indication: HYPOTHYROIDISM
     Dosage: 180 MG, QD
     Route: 048
     Dates: start: 1980, end: 2011
  5. VICODIN [Concomitant]
     Active Substance: ACETAMINOPHEN\HYDROCODONE BITARTRATE
     Indication: PRODUCT USED FOR UNKNOWN INDICATION
     Dosage: UNK
     Route: 065
  6. SOMA [Concomitant]
     Active Substance: CARISOPRODOL
     Indication: PRODUCT USED FOR UNKNOWN INDICATION
     Dosage: UNK
     Route: 065
  7. ARMOUR THYROID [Suspect]
     Active Substance: THYROID, PORCINE
     Dosage: 60 MG, BID
     Route: 048
     Dates: start: 201207

REACTIONS (15)
  - Swelling [Unknown]
  - Palpitations [Recovered/Resolved]
  - Weight decreased [Recovered/Resolved]
  - Dyspnoea [Recovered/Resolved]
  - Weight increased [Unknown]
  - Insomnia [Not Recovered/Not Resolved]
  - Onychoclasis [Unknown]
  - Malaise [Unknown]
  - Hyperhidrosis [Unknown]
  - Blood thyroid stimulating hormone decreased [Not Recovered/Not Resolved]
  - Fatigue [Unknown]
  - Chest pain [Not Recovered/Not Resolved]
  - Visual impairment [Recovered/Resolved]
  - Somnolence [Unknown]
  - Drug ineffective [Unknown]

NARRATIVE: CASE EVENT DATE: 201109
